FAERS Safety Report 7548676-4 (Version None)
Quarter: 2011Q2

REPORT INFORMATION
  Report Type: 
  Country: None (occurrence: None)
  Receive Date: 20110524
  Receipt Date: 20110310
  Transmission Date: 20111010
  Serious: No
  Sender: FDA-Public Use
  Company Number: 026928

PATIENT
  Sex: Female
  Weight: 49.9 kg

DRUGS (5)
  1. CIMZIA [Suspect]
     Indication: CROHN'S DISEASE
     Dosage: (400 MG 1X/4 WEEKS SUBCUTANEOUS)
     Route: 058
     Dates: start: 20110119
  2. CIMZIA [Suspect]
     Indication: CROHN'S DISEASE
     Dosage: (400 MG 1X/4 WEEKS SUBCUTANEOUS)
     Route: 058
     Dates: start: 20101222
  3. ADVIL LIQUI-GELS [Concomitant]
  4. IMURAN [Concomitant]
  5. FLAGYL [Concomitant]

REACTIONS (12)
  - ARTHRALGIA [None]
  - PYREXIA [None]
  - DECREASED APPETITE [None]
  - UNEVALUABLE EVENT [None]
  - PROCTALGIA [None]
  - NIGHT SWEATS [None]
  - INSOMNIA [None]
  - HYPERSOMNIA [None]
  - HEADACHE [None]
  - WEIGHT DECREASED [None]
  - FATIGUE [None]
  - ABSCESS [None]
